FAERS Safety Report 17262513 (Version 5)
Quarter: 2020Q1

REPORT INFORMATION
  Report Type: Report from Study
  Country: CO (occurrence: CO)
  Receive Date: 20200113
  Receipt Date: 20200227
  Transmission Date: 20200409
  Serious: Yes (Hospitalization)
  Sender: FDA-Public Use
  Company Number: NVSC2020CO004929

PATIENT
  Sex: Male
  Weight: 58 kg

DRUGS (1)
  1. TASIGNA [Suspect]
     Active Substance: NILOTINIB
     Indication: CHRONIC MYELOID LEUKAEMIA
     Dosage: 400 MG, Q12H
     Route: 048

REACTIONS (9)
  - Hip fracture [Unknown]
  - Malaise [Unknown]
  - Pyrexia [Unknown]
  - Chronic myeloid leukaemia recurrent [Unknown]
  - Dyspnoea [Unknown]
  - Chest pain [Unknown]
  - Fall [Unknown]
  - Pneumonia [Unknown]
  - Cough [Unknown]
